FAERS Safety Report 5513552-5 (Version None)
Quarter: 2007Q4

REPORT INFORMATION
  Report Type: 
  Country: None (occurrence: None)
  Receive Date: 20071108
  Receipt Date: 20071025
  Transmission Date: 20080405
  Serious: Yes (Hospitalization, Disabling)
  Sender: FDA-Public Use
  Company Number: POMP-11257

PATIENT
  Age: 1 Year
  Sex: Male
  Weight: 6 kg

DRUGS (3)
  1. MYOZYME [Suspect]
     Indication: GLYCOGEN STORAGE DISEASE TYPE II
     Dosage: 20 MG/KG Q2WKS IV
     Route: 042
     Dates: start: 20070415
  2. VANCOMYCIN [Concomitant]
  3. CEFTAZIDIME [Concomitant]

REACTIONS (4)
  - DIASTOLIC DYSFUNCTION [None]
  - GENERAL PHYSICAL HEALTH DETERIORATION [None]
  - INFECTION [None]
  - RESPIRATORY FAILURE [None]
